FAERS Safety Report 18749053 (Version 1)
Quarter: 2021Q1

REPORT INFORMATION
  Report Type: Spontaneous
  Country: FR (occurrence: FR)
  Receive Date: 20210116
  Receipt Date: 20210116
  Transmission Date: 20210419
  Serious: Yes (Death, Life-Threatening)
  Sender: FDA-Public Use
  Company Number: FR-ACCORD-091470

PATIENT
  Age: 23 Year
  Sex: Female
  Weight: 53 kg

DRUGS (12)
  1. METHOTREXATE. [Suspect]
     Active Substance: METHOTREXATE
     Indication: PRODUCT USED FOR UNKNOWN INDICATION
     Route: 037
     Dates: start: 20171223
  2. VALGANCICLOVIR. [Suspect]
     Active Substance: VALGANCICLOVIR
     Indication: CYTOMEGALOVIRUS INFECTION
     Route: 048
     Dates: start: 20171224, end: 20180104
  3. FUNGIZONE [Concomitant]
     Active Substance: AMPHOTERICIN B
  4. CREON [Concomitant]
     Active Substance: PANCRELIPASE AMYLASE\PANCRELIPASE LIPASE\PANCRELIPASE PROTEASE
  5. INEXIUM [Concomitant]
     Active Substance: ESOMEPRAZOLE
  6. ZARZIO [Concomitant]
     Active Substance: FILGRASTIM
  7. AMLOR [Concomitant]
     Active Substance: AMLODIPINE BESYLATE
  8. PIVALONE [Concomitant]
  9. ZITHROMAX [Concomitant]
     Active Substance: AZITHROMYCIN DIHYDRATE
  10. CHOLURSO [Concomitant]
     Active Substance: URSODIOL
  11. ADOPORT [Concomitant]
     Active Substance: TACROLIMUS
  12. SOLUPRED [Concomitant]

REACTIONS (1)
  - Pancytopenia [Fatal]

NARRATIVE: CASE EVENT DATE: 20171227
